FAERS Safety Report 8433932 (Version 2)
Quarter: 2012Q4

REPORT INFORMATION
  Report Type: Report from Study
  Country: JP (occurrence: JP)
  Receive Date: 20120229
  Receipt Date: 20121108
  Transmission Date: 20130627
  Serious: Yes (Death, Life-Threatening, Hospitalization, Other)
  Sender: FDA-Public Use
  Company Number: JP-CELGENEUS-087-50794-12022839

PATIENT
  Age: 78 Year
  Sex: Male
  Weight: 50 kg

DRUGS (26)
  1. VIDAZA [Suspect]
     Indication: MDS
     Dosage: 75 milligram/sq. meter
     Route: 058
     Dates: start: 20111205, end: 20111211
  2. CLARITIN REDITABS [Concomitant]
     Indication: DRUG USE FOR UNKNOWN INDICATION
     Route: 065
     Dates: end: 20111211
  3. DORIPENEM [Concomitant]
     Indication: FEBRILE NEUTROPENIA
     Route: 065
  4. ALEROFF [Concomitant]
     Indication: DRUG USE FOR UNKNOWN INDICATION
     Route: 065
     Dates: start: 20111212, end: 20120125
  5. BIO-THREE [Concomitant]
     Indication: DRUG USE FOR UNKNOWN INDICATION
     Route: 065
     Dates: end: 20111211
  6. MIYA-BM [Concomitant]
     Indication: DRUG USE FOR UNKNOWN INDICATION
     Route: 065
     Dates: start: 20111212, end: 20120125
  7. FAMOTIDINE [Concomitant]
     Indication: DRUG USE FOR UNKNOWN INDICATION
     Route: 065
     Dates: end: 20111211
  8. ALTAT [Concomitant]
     Indication: DRUG USE FOR UNKNOWN INDICATION
     Route: 065
     Dates: start: 20111212, end: 20120118
  9. MARZULENE-S [Concomitant]
     Indication: DRUG USE FOR UNKNOWN INDICATION
     Route: 065
     Dates: end: 20120118
  10. MAGNESIUM OXIDE [Concomitant]
     Indication: DRUG USE FOR UNKNOWN INDICATION
     Route: 065
     Dates: end: 20120118
  11. ISODINE GARGLE [Concomitant]
     Indication: DRUG USE FOR UNKNOWN INDICATION
     Route: 065
     Dates: start: 20111205
  12. FUNGIZONE [Concomitant]
     Indication: DRUG USE FOR UNKNOWN INDICATION
     Route: 065
     Dates: start: 20111205
  13. LOXOPROFEN SODIUM HYDRATE [Concomitant]
     Indication: DRUG USE FOR UNKNOWN INDICATION
     Route: 065
     Dates: start: 20111209
  14. GASMOTIN [Concomitant]
     Indication: DRUG USE FOR UNKNOWN INDICATION
     Route: 065
     Dates: start: 20111215, end: 20120125
  15. SODIUM PICOSULFATE HYDRATE [Concomitant]
     Indication: DRUG USE FOR UNKNOWN INDICATION
     Route: 065
     Dates: start: 20111217
  16. CEFEPIME [Concomitant]
     Indication: FEBRILE NEUTROPENIA
     Route: 065
     Dates: start: 20111209, end: 20111219
  17. PRODIF [Concomitant]
     Indication: DRUG USE FOR UNKNOWN INDICATION
     Route: 065
     Dates: start: 20111226, end: 20120105
  18. SULBACTAM SODIUM AMPICILLIN SODIUM [Concomitant]
     Indication: DRUG USE FOR UNKNOWN INDICATION
     Route: 065
     Dates: start: 20120105, end: 20120110
  19. CEFTRIAXONE SODIUM HYDRATE [Concomitant]
     Indication: DRUG USE FOR UNKNOWN INDICATION
     Route: 065
     Dates: start: 20120111, end: 20120114
  20. CIPROFLOXACIN [Concomitant]
     Indication: DRUG USE FOR UNKNOWN INDICATION
     Route: 065
     Dates: start: 20120114, end: 20120128
  21. MIDOCIN [Concomitant]
     Indication: DRUG USE FOR UNKNOWN INDICATION
     Route: 065
     Dates: start: 20120105, end: 20120119
  22. FUNGUARD [Concomitant]
     Indication: DRUG USE FOR UNKNOWN INDICATION
     Route: 065
     Dates: start: 20120105, end: 20120125
  23. NISSEKI POLYGLOBIN-N [Concomitant]
     Indication: DRUG USE FOR UNKNOWN INDICATION
     Route: 065
     Dates: start: 20120107, end: 20120109
  24. CEFON [Concomitant]
     Indication: DRUG USE FOR UNKNOWN INDICATION
     Route: 065
     Dates: start: 20120120, end: 20120131
  25. PREDONINE [Concomitant]
     Indication: DRUG USE FOR UNKNOWN INDICATION
     Route: 065
     Dates: start: 20120120, end: 20120123
  26. PREDONINE [Concomitant]
     Route: 065
     Dates: start: 20120124, end: 20120131

REACTIONS (6)
  - Bronchopneumonia [Fatal]
  - White blood cell count decreased [Not Recovered/Not Resolved]
  - Neutrophil count decreased [Not Recovered/Not Resolved]
  - Platelet count decreased [Not Recovered/Not Resolved]
  - Anaemia [Not Recovered/Not Resolved]
  - Pneumonia bacterial [Recovering/Resolving]
